FAERS Safety Report 25874486 (Version 1)
Quarter: 2025Q4

REPORT INFORMATION
  Report Type: Spontaneous
  Country: US (occurrence: None)
  Receive Date: 20251002
  Receipt Date: 20251002
  Transmission Date: 20260118
  Serious: No
  Sender: FDA-CTU
  Company Number: None

PATIENT
  Age: 59 Year
  Sex: Female

DRUGS (1)
  1. ADALIMUMAB-ADAZ [Suspect]
     Active Substance: ADALIMUMAB-ADAZ
     Indication: Psoriatic arthropathy
     Dosage: OTHER FREQUENCY : EVERY 2 WEEKS;?
     Route: 003
     Dates: start: 20250625, end: 20250825

REACTIONS (5)
  - Headache [None]
  - Myalgia [None]
  - Drug ineffective [None]
  - Oropharyngeal pain [None]
  - Therapy cessation [None]

NARRATIVE: CASE EVENT DATE: 20250709
